FAERS Safety Report 5174909-8 (Version None)
Quarter: 2006Q4

REPORT INFORMATION
  Report Type: 
  Country: None (occurrence: None)
  Receive Date: 20061206
  Receipt Date: 20061123
  Transmission Date: 20070319
  Serious: Yes (Hospitalization, Other)
  Sender: FDA-Public Use
  Company Number: 2006145454

PATIENT
  Sex: Male

DRUGS (1)
  1. GENOTROPIN [Suspect]
     Indication: OFF LABEL USE
     Dosage: 0.3 MG (0.3 MG, 1 IN 1 D)
     Dates: end: 20061116

REACTIONS (2)
  - CONDITION AGGRAVATED [None]
  - HYDROCEPHALUS [None]
